FAERS Safety Report 7197581-4 (Version None)
Quarter: 2010Q4

REPORT INFORMATION
  Report Type: 
  Country: None (occurrence: None)
  Receive Date: 20101227
  Receipt Date: 20101216
  Transmission Date: 20110411
  Serious: Yes (Hospitalization)
  Sender: FDA-Public Use
  Company Number: JP-JNJFOC-20100300943

PATIENT
  Sex: Female
  Weight: 66 kg

DRUGS (19)
  1. DOXIL [Suspect]
     Indication: OVARIAN CANCER RECURRENT
     Dosage: COURSE 6
     Route: 042
  2. DOXIL [Suspect]
     Dosage: COURSE 5
     Route: 042
  3. DOXIL [Suspect]
     Dosage: COURSE 4
     Route: 042
  4. DOXIL [Suspect]
     Dosage: COURSE 3
     Route: 042
  5. DOXIL [Suspect]
     Dosage: COURSE 2
     Route: 042
  6. DOXIL [Suspect]
     Dosage: COURSE 1
     Route: 042
  7. DECADRON [Concomitant]
     Indication: PROPHYLAXIS
     Route: 042
  8. GRANISETRON HCL [Concomitant]
     Indication: PROPHYLAXIS
     Route: 042
  9. NEUROVITAN [Concomitant]
     Indication: PROPHYLAXIS
     Route: 048
  10. ZOFRAN [Concomitant]
     Indication: PROPHYLAXIS
     Route: 048
  11. PURSENNID [Concomitant]
     Route: 048
  12. MAGLAX [Concomitant]
     Route: 048
  13. VOLTAREN [Concomitant]
     Route: 054
  14. UNASYN [Concomitant]
     Route: 042
  15. SOLUTIO G [Concomitant]
     Route: 042
  16. SOLUTIO G [Concomitant]
     Route: 042
  17. SOLDEM 3A [Concomitant]
     Route: 042
  18. SOLDEM 3A [Concomitant]
     Route: 042
  19. VITAMEDIN [Concomitant]
     Route: 042

REACTIONS (5)
  - C-REACTIVE PROTEIN INCREASED [None]
  - DIARRHOEA [None]
  - PYREXIA [None]
  - VOMITING [None]
  - WHITE BLOOD CELL COUNT DECREASED [None]
